FAERS Safety Report 24425531 (Version 1)
Quarter: 2024Q4

REPORT INFORMATION
  Report Type: Spontaneous
  Country: DE (occurrence: DE)
  Receive Date: 20241011
  Receipt Date: 20241011
  Transmission Date: 20250114
  Serious: Yes (Other)
  Sender: RANBAXY
  Company Number: DE-Gedeon Richter Plc.-2023_GR_002926

PATIENT
  Age: 32 Year
  Sex: Female
  Weight: 75 kg

DRUGS (3)
  1. VENLAFAXINE [Suspect]
     Active Substance: VENLAFAXINE HYDROCHLORIDE
     Indication: Depression
     Dosage: 112.5 MILLIGRAM, DAILY
     Route: 048
     Dates: start: 20220309, end: 20221202
  2. CARIPRAZINE [Suspect]
     Active Substance: CARIPRAZINE
     Indication: Schizophrenia
     Dosage: 3 MG DAILY
     Route: 048
     Dates: start: 20220309, end: 20221202
  3. CARIPRAZINE [Suspect]
     Active Substance: CARIPRAZINE
     Dosage: 4.5 [MG/D] REDUCED TO 3 MG DAILY
     Route: 048

REACTIONS (3)
  - Amniotic fluid volume increased [Recovered/Resolved]
  - COVID-19 [Unknown]
  - Maternal exposure during pregnancy [Recovered/Resolved]
